FAERS Safety Report 25299647 (Version 1)
Quarter: 2025Q2

REPORT INFORMATION
  Report Type: Spontaneous
  Country: FR (occurrence: FR)
  Receive Date: 20250512
  Receipt Date: 20250512
  Transmission Date: 20250716
  Serious: Yes (Life-Threatening)
  Sender: ACCORD
  Company Number: None

PATIENT
  Age: 60 Year
  Sex: Male

DRUGS (2)
  1. CISPLATIN [Suspect]
     Active Substance: CISPLATIN
     Indication: Squamous cell carcinoma
     Dates: start: 20250303, end: 20250303
  2. SKENAN [Suspect]
     Active Substance: MORPHINE SULFATE
     Indication: Pain management
     Dosage: STRENGTH: 10MG, PROLONGED RELEASE MICROGRANULES IN CAPSULE
     Dates: start: 20250303, end: 20250304

REACTIONS (1)
  - Hypoxia [Recovered/Resolved]

NARRATIVE: CASE EVENT DATE: 20250304
